FAERS Safety Report 7562363-8 (Version None)
Quarter: 2011Q2

REPORT INFORMATION
  Report Type: 
  Country: None (occurrence: None)
  Receive Date: 20110620
  Receipt Date: 20110620
  Transmission Date: 20111010
  Serious: Yes (Hospitalization)
  Sender: FDA-Public Use
  Company Number: None

PATIENT
  Sex: Male
  Weight: 63 kg

DRUGS (1)
  1. FLUTAMIDE [Suspect]
     Dosage: 40750MG

REACTIONS (1)
  - ALANINE AMINOTRANSFERASE INCREASED [None]
